FAERS Safety Report 5804859-2 (Version None)
Quarter: 2008Q3

REPORT INFORMATION
  Report Type: 
  Country: None (occurrence: None)
  Receive Date: 20080707
  Receipt Date: 20070828
  Transmission Date: 20090109
  Serious: Yes (Other)
  Sender: FDA-Public Use
  Company Number: 402198

PATIENT
  Age: 88 Year
  Sex: Female

DRUGS (3)
  1. MYCOPHENOLATE MOFETIL [Suspect]
     Indication: MYASTHENIA GRAVIS
     Dosage: 1000 MG 2 PER DAY
  2. PREDNSONE (PREDNISONE) [Concomitant]
  3. PYRIDOSTIGMINE (PYRIDOSTIGMINE BROMIDE) [Concomitant]

REACTIONS (1)
  - B-CELL LYMPHOMA [None]
